FAERS Safety Report 5710504-7 (Version None)
Quarter: 2008Q2

REPORT INFORMATION
  Report Type: 
  Country: None (occurrence: None)
  Receive Date: 20080414
  Receipt Date: 20080408
  Transmission Date: 20081010
  Serious: Yes (Death, Life-Threatening, Hospitalization, Other)
  Sender: FDA-Public Use
  Company Number: 2007SP008710

PATIENT
  Age: 59 Year
  Sex: Female
  Weight: 48 kg

DRUGS (27)
  1. TEMODAL [Suspect]
     Indication: LYMPHOMA
     Dosage: 75 MG/M2,QD.PO; 150 MG/M2;QD;PO
     Route: 048
     Dates: start: 20070129, end: 20070311
  2. TEMODAL [Suspect]
     Indication: LYMPHOMA
     Dosage: 75 MG/M2,QD.PO; 150 MG/M2;QD;PO
     Route: 048
     Dates: start: 20070409, end: 20070413
  3. BAKTAR [Concomitant]
  4. BAKTAR [Concomitant]
  5. BENAMBAX [Concomitant]
  6. RADEN [Concomitant]
  7. RITALIN [Concomitant]
  8. CHOLINE [Concomitant]
  9. PREDNISOLONE [Concomitant]
  10. GLYCYRON [Concomitant]
  11. DEPAKENE [Concomitant]
  12. NEOLAMIN 3B [Concomitant]
  13. ASCORBIC ACID [Concomitant]
  14. VEEN D [Concomitant]
  15. AMINOFLUID [Concomitant]
  16. FUNGUARD [Concomitant]
  17. SOLDEM 3AG [Concomitant]
  18. ZANTAC [Concomitant]
  19. RINDERON [Concomitant]
  20. WHITE PETROLATUM [Concomitant]
  21. SOLDEM 3A [Concomitant]
  22. DESPA [Concomitant]
  23. BLOSTAR M [Concomitant]
  24. MOBIC [Concomitant]
  25. HORIZON [Concomitant]
  26. LAC B [Concomitant]
  27. TELEMINSOFT [Concomitant]

REACTIONS (14)
  - ASPIRATION [None]
  - DISEASE PROGRESSION [None]
  - DISSEMINATED INTRAVASCULAR COAGULATION [None]
  - ELECTROLYTE IMBALANCE [None]
  - ENTEROCOCCAL INFECTION [None]
  - ILL-DEFINED DISORDER [None]
  - LYMPHOMA [None]
  - PANCYTOPENIA [None]
  - PNEUMONIA BACTERIAL [None]
  - PYREXIA [None]
  - RENAL FAILURE ACUTE [None]
  - SPUTUM CULTURE POSITIVE [None]
  - STAPHYLOCOCCAL INFECTION [None]
  - TUMOUR INVASION [None]
